FAERS Safety Report 7936259-3 (Version None)
Quarter: 2011Q4

REPORT INFORMATION
  Report Type: 
  Country: None (occurrence: None)
  Receive Date: 20111121
  Receipt Date: 20111108
  Transmission Date: 20120403
  Serious: Yes (Hospitalization, Other)
  Sender: FDA-Public Use
  Company Number: 2010MA005101

PATIENT
  Age: 54 Year
  Sex: Male
  Weight: 72.5755 kg

DRUGS (37)
  1. PATANOL [Concomitant]
  2. WARFARIN SODIUM [Concomitant]
  3. CARTIA XT [Concomitant]
  4. IBUPROFEN [Concomitant]
  5. PROAIR HFA [Concomitant]
  6. EFFEXOR [Concomitant]
  7. ACIPHEX [Concomitant]
  8. COUMADIN [Concomitant]
  9. LANOXIN [Concomitant]
  10. METOPROLOL TARTRATE [Concomitant]
  11. CELEBREX [Concomitant]
  12. VIAGRA [Concomitant]
  13. XANAX [Concomitant]
  14. OMEPRAZOLE [Concomitant]
  15. LISINOPRIL [Concomitant]
  16. BENZTROPINE MESYLATE [Concomitant]
  17. SKELAXIN [Concomitant]
  18. HYDROCODONE BITARTRATE AND ACETAMINOPHEN [Concomitant]
  19. CLONIDINE [Concomitant]
  20. FUROSEMIDE [Concomitant]
  21. METHYLPREDNISOLONE [Concomitant]
  22. TRIMOX [Concomitant]
  23. DOXYCYCLINE [Concomitant]
  24. LISINOPRIL [Concomitant]
  25. FLOMAX [Concomitant]
  26. PACERONE [Concomitant]
  27. MECLIZINE [Concomitant]
  28. PROPDXYPHENE N-100/APAP [Concomitant]
  29. TRAMADOL HCL [Concomitant]
  30. GABAPENTIN [Concomitant]
  31. RANITIDINE [Concomitant]
  32. ZOLOFT [Concomitant]
  33. METOCLOPRAMIDE [Suspect]
     Indication: GASTROOESOPHAGEAL REFLUX DISEASE
     Dosage: 10 MG;QID;PO
     Route: 048
     Dates: start: 20000418, end: 20090423
  34. DILTIAZEM HCL [Concomitant]
  35. NAPROXEN [Concomitant]
  36. WELLBUTRIN [Concomitant]
  37. ERYTHROMYCIN [Concomitant]

REACTIONS (52)
  - TARDIVE DYSKINESIA [None]
  - EXTRAPYRAMIDAL DISORDER [None]
  - RESTLESS LEGS SYNDROME [None]
  - INSOMNIA [None]
  - FEELING ABNORMAL [None]
  - DEPRESSION [None]
  - NOCTURIA [None]
  - VERTIGO POSITIONAL [None]
  - VISUAL IMPAIRMENT [None]
  - NAUSEA [None]
  - LEFT VENTRICULAR HYPERTROPHY [None]
  - GRIMACING [None]
  - GASTROOESOPHAGEAL REFLUX DISEASE [None]
  - HEADACHE [None]
  - DYSPNOEA [None]
  - ATRIAL FIBRILLATION [None]
  - ELECTROCARDIOGRAM REPOLARISATION ABNORMALITY [None]
  - MOVEMENT DISORDER [None]
  - INTERVERTEBRAL DISC DISORDER [None]
  - HEAD INJURY [None]
  - ASTHENIA [None]
  - TREMOR [None]
  - ARRHYTHMIA [None]
  - ECONOMIC PROBLEM [None]
  - PROTRUSION TONGUE [None]
  - DISTURBANCE IN ATTENTION [None]
  - UNEVALUABLE EVENT [None]
  - CHEST DISCOMFORT [None]
  - CONGESTIVE CARDIOMYOPATHY [None]
  - BALANCE DISORDER [None]
  - DIPLOPIA [None]
  - NECK INJURY [None]
  - PALPITATIONS [None]
  - BLOOD PRESSURE INCREASED [None]
  - ARTHRALGIA [None]
  - AMNESIA [None]
  - DIZZINESS [None]
  - BACK PAIN [None]
  - ATRIAL THROMBOSIS [None]
  - DYSPEPSIA [None]
  - GAIT DISTURBANCE [None]
  - FALL [None]
  - CARDIAC FAILURE CONGESTIVE [None]
  - EMOTIONAL DISTRESS [None]
  - TONGUE BITING [None]
  - ANXIETY [None]
  - FATIGUE [None]
  - ERECTILE DYSFUNCTION [None]
  - DRY MOUTH [None]
  - MALAISE [None]
  - COORDINATION ABNORMAL [None]
  - MYOCARDIAL ISCHAEMIA [None]
